FAERS Safety Report 5286711-7 (Version None)
Quarter: 2007Q2

REPORT INFORMATION
  Report Type: 
  Country: None (occurrence: None)
  Receive Date: 20070404
  Receipt Date: 20070327
  Transmission Date: 20071010
  Serious: Yes (Other)
  Sender: FDA-Public Use
  Company Number: HQWYE276101MAR07

PATIENT
  Sex: Male
  Weight: 93.52 kg

DRUGS (8)
  1. EFFEXOR XR [Suspect]
     Indication: DEPRESSION
     Route: 048
     Dates: start: 20010101
  2. EFFEXOR XR [Suspect]
     Indication: ANXIETY
     Route: 048
  3. EFFEXOR XR [Suspect]
     Route: 048
  4. EFFEXOR XR [Suspect]
     Route: 048
  5. EFFEXOR XR [Suspect]
     Route: 048
  6. EFFEXOR XR [Suspect]
     Dosage: RAISED THE DOSE
     Route: 048
  7. REMERON [Concomitant]
     Indication: RESTLESS LEGS SYNDROME
     Dates: start: 20020101
  8. KLONOPIN [Concomitant]
     Indication: ANXIETY
     Dosage: UNKNOWN DOSE AT BEDTIME
     Dates: start: 20010101

REACTIONS (7)
  - ANXIETY [None]
  - DRUG WITHDRAWAL SYNDROME [None]
  - FEAR [None]
  - FEELING ABNORMAL [None]
  - HYPERHIDROSIS [None]
  - SKIN DISCOLOURATION [None]
  - UNEVALUABLE EVENT [None]
